FAERS Safety Report 19804306 (Version 1)
Quarter: 2021Q3

REPORT INFORMATION
  Report Type: Spontaneous
  Country: US (occurrence: US)
  Receive Date: 20210908
  Receipt Date: 20210908
  Transmission Date: 20211014
  Serious: No
  Sender: FDA-Public Use
  Company Number: US-FARMAPROD-202105-0686

PATIENT
  Sex: Female

DRUGS (8)
  1. MYRBETRIQ [Concomitant]
     Active Substance: MIRABEGRON
  2. ZYRTEC [Concomitant]
     Active Substance: CETIRIZINE HYDROCHLORIDE
  3. VITAMIN D2 [Concomitant]
     Active Substance: ERGOCALCIFEROL
  4. RESTASIS [Concomitant]
     Active Substance: CYCLOSPORINE
  5. VALACYCLOVIR [Concomitant]
     Active Substance: VALACYCLOVIR HYDROCHLORIDE
  6. KLOR?CON/EF [Concomitant]
     Active Substance: POTASSIUM BICARBONATE
  7. LEVOTHYROXINE. [Concomitant]
     Active Substance: LEVOTHYROXINE
  8. OXERVATE [Suspect]
     Active Substance: CENEGERMIN-BKBJ
     Indication: NEUROTROPHIC KERATOPATHY
     Route: 047
     Dates: start: 20210426

REACTIONS (2)
  - Eye pain [Unknown]
  - Product use issue [Unknown]
